FAERS Safety Report 12320410 (Version 1)
Quarter: 2016Q2

REPORT INFORMATION
  Report Type: Report from Study
  Country: US (occurrence: US)
  Receive Date: 20160429
  Receipt Date: 20160429
  Transmission Date: 20160815
  Serious: Yes (Hospitalization)
  Sender: FDA-Public Use
  Company Number: US-ABBVIE-16K-163-1612503-00

PATIENT
  Age: 65 Year
  Sex: Male
  Weight: 83.99 kg

DRUGS (5)
  1. HUMIRA [Suspect]
     Active Substance: ADALIMUMAB
     Indication: CROHN^S DISEASE
     Dosage: LOADING DOSE
     Route: 058
  2. HUMIRA [Suspect]
     Active Substance: ADALIMUMAB
     Dosage: LOADING DOSE,TWO WEEKS AFTER 160 MG DOSE
     Route: 058
  3. MULTIVITAMIN [Concomitant]
     Active Substance: VITAMINS
     Indication: PRODUCT USED FOR UNKNOWN INDICATION
  4. PREDNISONE. [Suspect]
     Active Substance: PREDNISONE
     Indication: PRODUCT USED FOR UNKNOWN INDICATION
     Route: 065
  5. HUMIRA [Suspect]
     Active Substance: ADALIMUMAB
     Dosage: TWO WEEKS AFTER 80 MG DOSE
     Route: 058

REACTIONS (6)
  - Drug ineffective [Unknown]
  - Intestinal scarring [Recovered/Resolved]
  - Gastrointestinal fistula [Unknown]
  - Procedural pain [Unknown]
  - Small intestinal obstruction [Recovered/Resolved]
  - Intestinal sepsis [Recovered/Resolved]

NARRATIVE: CASE EVENT DATE: 20160329
